FAERS Safety Report 16130805 (Version 1)
Quarter: 2019Q1

REPORT INFORMATION
  Report Type: Report from Study
  Country: US (occurrence: US)
  Receive Date: 20190328
  Receipt Date: 20190328
  Transmission Date: 20190418
  Serious: Yes (Hospitalization, Other)
  Sender: FDA-Public Use
  Company Number: US-GILEAD-2019-0399299

PATIENT
  Age: 63 Year
  Sex: Male

DRUGS (7)
  1. AMBRISENTAN [Suspect]
     Active Substance: AMBRISENTAN
     Indication: PULMONARY ARTERIAL HYPERTENSION
     Dosage: 10 MG, QD
     Route: 048
     Dates: start: 20161117
  2. LASIX [Concomitant]
     Active Substance: FUROSEMIDE
  3. METOLAZONE. [Concomitant]
     Active Substance: METOLAZONE
  4. AMBRISENTAN [Suspect]
     Active Substance: AMBRISENTAN
     Indication: CONNECTIVE TISSUE DISORDER
  5. LACTULOSE. [Concomitant]
     Active Substance: LACTULOSE
  6. SILDENAFIL. [Concomitant]
     Active Substance: SILDENAFIL
  7. AMBRISENTAN [Suspect]
     Active Substance: AMBRISENTAN
     Indication: HEART DISEASE CONGENITAL

REACTIONS (5)
  - Barrett^s oesophagus [Unknown]
  - Anaemia [Unknown]
  - Asthenia [Unknown]
  - Arteriovenous malformation [Unknown]
  - Dizziness [Unknown]

NARRATIVE: CASE EVENT DATE: 201903
